FAERS Safety Report 8514224-5 (Version None)
Quarter: 2012Q3

REPORT INFORMATION
  Report Type: 
  Country: None (occurrence: None)
  Receive Date: 20120717
  Receipt Date: 20120712
  Transmission Date: 20120928
  Serious: Yes (Hospitalization, Other)
  Sender: FDA-Public Use
  Company Number: US-BAYER-2012-070569

PATIENT
  Age: 36 Year
  Sex: Female
  Weight: 82 kg

DRUGS (9)
  1. MULTI-VITAMIN [Concomitant]
  2. MEDROL [Concomitant]
     Dosage: 4 MG, UNK
     Dates: start: 20080125
  3. FLUCONAZOLE [Concomitant]
     Dosage: 100 MG, UNK
     Route: 048
     Dates: start: 20080131
  4. CHERATUSSIN [AMMONIUM CHLORIDE,DEXTROMETHORPHAN HYDROBROMIDE,SODIU [Concomitant]
     Dosage: UNK
     Route: 048
     Dates: start: 20080118
  5. AUGMENTIN '125' [Concomitant]
     Dosage: UNK
     Dates: start: 20080125
  6. SYMBICORT [Concomitant]
     Dosage: 160/4.5MCG
     Dates: start: 20080118
  7. YAZ [Suspect]
  8. LEVAQUIN [Concomitant]
     Dosage: UNK
     Dates: end: 20080122
  9. AZITHROMYCIN [Concomitant]
     Dosage: 250 MG, UNK
     Route: 048
     Dates: start: 20080118

REACTIONS (2)
  - PULMONARY EMBOLISM [None]
  - DEEP VEIN THROMBOSIS [None]
